FAERS Safety Report 21237509 (Version 1)
Quarter: 2022Q3

REPORT INFORMATION
  Report Type: Spontaneous
  Country: US (occurrence: US)
  Receive Date: 20220822
  Receipt Date: 20220822
  Transmission Date: 20221027
  Serious: Yes (Other)
  Sender: FDA-Public Use
  Company Number: None

PATIENT
  Age: 41 Year
  Sex: Female

DRUGS (9)
  1. FLUOXETINE [Suspect]
     Active Substance: FLUOXETINE HYDROCHLORIDE
     Indication: Social anxiety disorder
     Dosage: UNK,(INCREASED DOSES)
     Route: 065
  2. FLUOXETINE [Suspect]
     Active Substance: FLUOXETINE HYDROCHLORIDE
     Dosage: 10 MILLIGRAM
     Route: 065
  3. ALPRAZOLAM [Suspect]
     Active Substance: ALPRAZOLAM
     Indication: Anxiety
     Dosage: 0.5 MILLIGRAM, PER DAY,(AS NEEDED)
     Route: 048
  4. ALPRAZOLAM [Suspect]
     Active Substance: ALPRAZOLAM
     Indication: Social anxiety disorder
  5. SERTRALINE [Suspect]
     Active Substance: SERTRALINE HYDROCHLORIDE
     Indication: Social anxiety disorder
     Dosage: UNK
     Route: 065
  6. ESCITALOPRAM [Suspect]
     Active Substance: ESCITALOPRAM OXALATE
     Indication: Social anxiety disorder
     Dosage: UNK
     Route: 065
  7. VENLAFAXINE [Suspect]
     Active Substance: VENLAFAXINE HYDROCHLORIDE
     Indication: Social anxiety disorder
     Dosage: UNK
     Route: 065
  8. DESVENLAFAXINE [Suspect]
     Active Substance: DESVENLAFAXINE
     Indication: Social anxiety disorder
     Dosage: UNK
     Route: 065
  9. BUPROPION HYDROCHLORIDE [Suspect]
     Active Substance: BUPROPION HYDROCHLORIDE
     Indication: Social anxiety disorder
     Dosage: UNK
     Route: 065

REACTIONS (8)
  - Asphyxia [Recovered/Resolved]
  - Dyspnoea [Recovered/Resolved]
  - Yawning [Recovered/Resolved]
  - Loss of personal independence in daily activities [Recovered/Resolved]
  - Emotional distress [Recovered/Resolved]
  - Irritability [Recovered/Resolved]
  - Drug intolerance [Recovered/Resolved]
  - Therapy partial responder [Unknown]
